FAERS Safety Report 6382131-2 (Version None)
Quarter: 2009Q3

REPORT INFORMATION
  Report Type: 
  Country: None (occurrence: None)
  Receive Date: 20090930
  Receipt Date: 20090925
  Transmission Date: 20100115
  Serious: Yes (Life-Threatening, Hospitalization)
  Sender: FDA-Public Use
  Company Number: PHHY2009DK41478

PATIENT
  Sex: Male
  Weight: 83 kg

DRUGS (2)
  1. RITALIN [Suspect]
     Indication: ATTENTION DEFICIT/HYPERACTIVITY DISORDER
     Dosage: 5 MG, BID
     Dates: start: 20090818
  2. RITALIN [Suspect]
     Dosage: 10 MG, BID

REACTIONS (4)
  - ANGINA UNSTABLE [None]
  - CHEST DISCOMFORT [None]
  - ISCHAEMIA [None]
  - PAIN IN EXTREMITY [None]
